FAERS Safety Report 12740949 (Version 1)
Quarter: 2016Q3

REPORT INFORMATION
  Report Type: Report from Study
  Country: US (occurrence: US)
  Receive Date: 20160914
  Receipt Date: 20160914
  Transmission Date: 20161109
  Serious: Yes (Death)
  Sender: FDA-Public Use
  Company Number: US-ASTRAZENECA-2016SE95787

PATIENT
  Age: 19409 Day
  Sex: Female
  Weight: 67 kg

DRUGS (4)
  1. ZOLADEX [Suspect]
     Active Substance: GOSERELIN ACETATE
     Indication: BREAST CANCER FEMALE
     Route: 058
     Dates: start: 201111, end: 20160622
  2. HALDOL [Concomitant]
     Active Substance: HALOPERIDOL
     Indication: AGITATION
     Dosage: INTERMITTENT
     Route: 030
  3. ATIVAN, LORAZEPAM [Concomitant]
     Indication: ANXIETY
     Dosage: INTERMITTENT
  4. MORPHINE INJECTION [Concomitant]
     Active Substance: MORPHINE
     Indication: PAIN
     Dosage: INTERMITTENT, TAKEN EVERY 6 HOURS AS REQUIRED
     Dates: start: 201607

REACTIONS (1)
  - Death [Fatal]

NARRATIVE: CASE EVENT DATE: 20160902
